FAERS Safety Report 8841968 (Version 1)
Quarter: 2012Q4

REPORT INFORMATION
  Report Type: 
  Country: EC (occurrence: EC)
  Receive Date: 20121016
  Receipt Date: 20121016
  Transmission Date: 20130627
  Serious: Yes (Hospitalization, Other)
  Sender: FDA-Public Use
  Company Number: PHHY2012EC091197

PATIENT
  Age: 52 Year
  Sex: Female

DRUGS (2)
  1. EXFORGE [Suspect]
     Indication: HYPERTENSION
     Dosage: 1 DF, (160/10 mg) per day
     Dates: start: 20120503
  2. INSULIN [Concomitant]

REACTIONS (3)
  - Dengue fever [Recovering/Resolving]
  - Bone pain [Recovering/Resolving]
  - Haemoptysis [Recovering/Resolving]
